FAERS Safety Report 11615104 (Version 3)
Quarter: 2016Q2

REPORT INFORMATION
  Report Type: Spontaneous
  Country: US (occurrence: US)
  Receive Date: 20151009
  Receipt Date: 20160530
  Transmission Date: 20160815
  Serious: No
  Sender: FDA-Public Use
  Company Number: US-AMGEN-USASP2015104147

PATIENT
  Age: 59 Year
  Sex: Female

DRUGS (7)
  1. VALACYCLOVIR [Concomitant]
     Active Substance: VALACYCLOVIR HYDROCHLORIDE
     Dosage: 500 MG, UNK
  2. CANDESARTAN HCTZ [Concomitant]
     Active Substance: CANDESARTAN CILEXETIL\HYDROCHLOROTHIAZIDE
     Dosage: 16-12.5
  3. DULOXETINE. [Concomitant]
     Active Substance: DULOXETINE
     Dosage: 20 MG, UNK
  4. ATORVASTATIN [Concomitant]
     Active Substance: ATORVASTATIN
     Dosage: 40 MG, UNK
  5. METOPROLOL. [Concomitant]
     Active Substance: METOPROLOL
     Dosage: 25 MG, UNK
  6. ENBREL [Suspect]
     Active Substance: ETANERCEPT
     Indication: RHEUMATOID ARTHRITIS
     Dosage: 50 MG, ONCE WEEKLY ON THE SAME DAY OF THE WEEK
     Route: 058
     Dates: start: 201401
  7. LOSARTAN POTASICO [Concomitant]
     Active Substance: LOSARTAN
     Dosage: 100 MG, UNK

REACTIONS (7)
  - Drug ineffective [Not Recovered/Not Resolved]
  - Arthralgia [Not Recovered/Not Resolved]
  - Pain in extremity [Not Recovered/Not Resolved]
  - Fatigue [Not Recovered/Not Resolved]
  - Upper respiratory tract infection [Not Recovered/Not Resolved]
  - Arthropathy [Not Recovered/Not Resolved]
  - Musculoskeletal disorder [Not Recovered/Not Resolved]

NARRATIVE: CASE EVENT DATE: 201509
